FAERS Safety Report 24874739 (Version 1)
Quarter: 2025Q1

REPORT INFORMATION
  Report Type: Spontaneous
  Country: US (occurrence: None)
  Receive Date: 20250122
  Receipt Date: 20250122
  Transmission Date: 20250408
  Serious: Yes (Life-Threatening, Hospitalization, Disabling, Other)
  Sender: FDA-CTU
  Company Number: None

PATIENT
  Age: 20 Year
  Sex: Male

DRUGS (12)
  1. INVEGA SUSTENNA [Suspect]
     Active Substance: PALIPERIDONE PALMITATE
     Indication: Schizophrenia
     Route: 030
  2. TRILEPTAL [Suspect]
     Active Substance: OXCARBAZEPINE
  3. SEROQUEL [Suspect]
     Active Substance: QUETIAPINE FUMARATE
  4. VISTARIL [Suspect]
     Active Substance: HYDROXYZINE PAMOATE
  5. INVEGA [Suspect]
     Active Substance: PALIPERIDONE
  6. ZOLOFT [Suspect]
     Active Substance: SERTRALINE HYDROCHLORIDE
  7. BENZTROPINE [Suspect]
     Active Substance: BENZTROPINE
  8. PROPRANOLOL [Suspect]
     Active Substance: PROPRANOLOL HYDROCHLORIDE
  9. TRAZODONE [Suspect]
     Active Substance: TRAZODONE HYDROCHLORIDE
  10. ZYPREXA [Suspect]
     Active Substance: OLANZAPINE
  11. PAXIL [Suspect]
     Active Substance: PAROXETINE HYDROCHLORIDE
  12. VYVANSE [Suspect]
     Active Substance: LISDEXAMFETAMINE DIMESYLATE

REACTIONS (13)
  - Homicide [None]
  - Acute psychosis [None]
  - Acute kidney injury [None]
  - Bipolar disorder [None]
  - Rhabdomyolysis [None]
  - Hallucination [None]
  - Aggression [None]
  - Paranoia [None]
  - Irritability [None]
  - Aggression [None]
  - Soliloquy [None]
  - Aggression [None]
  - Obsessive-compulsive disorder [None]

NARRATIVE: CASE EVENT DATE: 20211228
